FAERS Safety Report 7178854-8 (Version None)
Quarter: 2010Q4

REPORT INFORMATION
  Report Type: 
  Country: None (occurrence: None)
  Receive Date: 20101221
  Receipt Date: 20101216
  Transmission Date: 20110411
  Serious: Yes (Hospitalization)
  Sender: FDA-Public Use
  Company Number: JP-BRISTOL-MYERS SQUIBB COMPANY-15447790

PATIENT
  Age: 74 Year
  Sex: Female

DRUGS (1)
  1. ORENCIA [Suspect]
     Dosage: 2ND ADMINISTRATION
     Route: 041
     Dates: start: 20101130

REACTIONS (1)
  - CEREBRAL INFARCTION [None]
